FAERS Safety Report 8608697 (Version 4)
Quarter: 2013Q1

REPORT INFORMATION
  Report Type: Spontaneous
  Country: US (occurrence: US)
  Receive Date: 20120611
  Receipt Date: 20130117
  Transmission Date: 20140127
  Serious: Yes (Hospitalization, Disabling, Other)
  Sender: FDA-Public Use
  Company Number: US-MERCK-1206USA00883

PATIENT
  Sex: 0

DRUGS (6)
  1. FOSAMAX [Suspect]
     Indication: OSTEOPENIA
     Dosage: 10 MG, QD
     Route: 048
     Dates: start: 1995, end: 20001212
  2. FOSAMAX [Suspect]
     Indication: OSTEOPOROSIS
     Dosage: 70 MG, QW
     Dates: start: 20001212, end: 200511
  3. FOSAMAX PLUS D [Suspect]
     Indication: OSTEOPOROSIS
     Dosage: 70MG/2800
     Route: 048
     Dates: start: 20051115, end: 20090915
  4. FOSAMAX PLUS D [Suspect]
     Indication: OSTEOPENIA
  5. CALCIUM (UNSPECIFIED) [Concomitant]
     Indication: OSTEOPENIA
  6. CALCIUM (UNSPECIFIED) [Concomitant]
     Indication: OSTEOPOROSIS

REACTIONS (65)
  - Femur fracture [Not Recovered/Not Resolved]
  - Femur fracture [Unknown]
  - Device failure [Unknown]
  - Fallopian tube disorder [Unknown]
  - Breast cancer [Unknown]
  - Uterine disorder [Unknown]
  - Gallbladder disorder [Unknown]
  - Uvulectomy [Unknown]
  - Palatal disorder [Unknown]
  - Depression [Unknown]
  - Anxiety [Unknown]
  - Limb injury [Unknown]
  - Indifference [Unknown]
  - Osteoarthritis [Unknown]
  - Spinal disorder [Unknown]
  - Ingrowing nail [Unknown]
  - Diabetes mellitus [Unknown]
  - Psychotic disorder [Unknown]
  - Hypothyroidism [Unknown]
  - Hypercholesterolaemia [Unknown]
  - Hypertension [Unknown]
  - Compression fracture [Unknown]
  - Dermatitis [Unknown]
  - Synovial cyst [Unknown]
  - Bursitis [Unknown]
  - Plantar fasciitis [Unknown]
  - Mania [Unknown]
  - Brief psychotic disorder with marked stressors [Unknown]
  - Major depression [Unknown]
  - Sleep disorder [Unknown]
  - Oedema [Unknown]
  - Paranoia [Unknown]
  - Skin discolouration [Unknown]
  - Cystitis [Unknown]
  - Contusion [Unknown]
  - Fall [Unknown]
  - Drooling [Unknown]
  - Hypokalaemia [Unknown]
  - Body tinea [Unknown]
  - Deep vein thrombosis [Unknown]
  - Unevaluable event [Unknown]
  - Gait disturbance [Unknown]
  - Speech disorder [Unknown]
  - Decreased appetite [Unknown]
  - Disturbance in attention [Unknown]
  - Decreased interest [Unknown]
  - Hallucination [Unknown]
  - Abdominal hernia [Unknown]
  - Anaemia postoperative [Unknown]
  - Drug dependence [Unknown]
  - Suicidal ideation [Unknown]
  - Fatigue [Unknown]
  - Pollakiuria [Unknown]
  - Asthenia [Unknown]
  - Insomnia [Unknown]
  - Constipation [Unknown]
  - Oesophagitis [Unknown]
  - Back pain [Unknown]
  - Gastrooesophageal reflux disease [Unknown]
  - Gastritis [Unknown]
  - Back pain [Unknown]
  - Rash [Unknown]
  - Myalgia [Unknown]
  - Spinal osteoarthritis [Unknown]
  - Facet joint syndrome [Unknown]
